FAERS Safety Report 4262569-X (Version None)
Quarter: 2004Q1

REPORT INFORMATION
  Report Type: 
  Country: None (occurrence: None)
  Receive Date: 20040102
  Receipt Date: 20031022
  Transmission Date: 20041129
  Serious: Yes (Other)
  Sender: FDA-Public Use
  Company Number: WAES 0310DEU00194

PATIENT
  Age: 60 Year
  Sex: Male
  Weight: 95 kg

DRUGS (2)
  1. VIOXX [Suspect]
     Route: 048
     Dates: start: 20001214
  2. VIOXX [Suspect]
     Route: 048
     Dates: end: 20000101

REACTIONS (3)
  - CATARACT [None]
  - DRY MOUTH [None]
  - KERATOCONJUNCTIVITIS SICCA [None]
